FAERS Safety Report 19844904 (Version 1)
Quarter: 2021Q3

REPORT INFORMATION
  Report Type: Report from Study
  Country: FR (occurrence: FR)
  Receive Date: 20210917
  Receipt Date: 20210917
  Transmission Date: 20211014
  Serious: Yes (Hospitalization)
  Sender: FDA-Public Use
  Company Number: FR-ROCHE-2668193

PATIENT
  Age: 22 Year
  Sex: Male
  Weight: 66 kg

DRUGS (2)
  1. ATEZOLIZUMAB. [Suspect]
     Active Substance: ATEZOLIZUMAB
     Indication: SOFT TISSUE SARCOMA
     Route: 042
     Dates: start: 20200706, end: 20200818
  2. COBIMETINIB. [Suspect]
     Active Substance: COBIMETINIB
     Indication: SOFT TISSUE SARCOMA
     Dosage: 21 DAYS ON / 7 DAYS OFF
     Route: 048
     Dates: start: 20200706, end: 20200720

REACTIONS (2)
  - Musculoskeletal chest pain [Recovered/Resolved]
  - Enteritis [Recovered/Resolved]

NARRATIVE: CASE EVENT DATE: 20200827
